FAERS Safety Report 6719796-9 (Version None)
Quarter: 2010Q2

REPORT INFORMATION
  Report Type: 
  Country: None (occurrence: None)
  Receive Date: 20100511
  Receipt Date: 20100501
  Transmission Date: 20101027
  Serious: Yes (Hospitalization)
  Sender: FDA-Public Use
  Company Number: Z0001564E

PATIENT
  Sex: Male
  Weight: 72 kg

DRUGS (4)
  1. BLINDED TRIAL MEDICATION [Suspect]
     Route: 048
     Dates: start: 20090722
  2. DIGOXIN [Suspect]
     Indication: ATRIAL FIBRILLATION
     Dosage: .625MG PER DAY
     Route: 045
     Dates: start: 20090612, end: 20100403
  3. CARVEDILOL [Suspect]
     Indication: ATRIAL FIBRILLATION
     Dosage: 12.5MG TWICE PER DAY
     Route: 048
     Dates: start: 20080807, end: 20100403
  4. CARVEDILOL [Concomitant]
     Indication: LEFT VENTRICULAR DYSFUNCTION
     Dosage: 6.25MG TWICE PER DAY
     Route: 048
     Dates: start: 20100404

REACTIONS (1)
  - CIRCULATORY COLLAPSE [None]
